FAERS Safety Report 25610258 (Version 2)
Quarter: 2025Q3

REPORT INFORMATION
  Report Type: Spontaneous
  Country: US (occurrence: US)
  Receive Date: 20250728
  Receipt Date: 20250902
  Transmission Date: 20251020
  Serious: No
  Sender: Onesource Specialty Pharma
  Company Number: US-MLMSERVICE-20250620-PI548806-00233-1

PATIENT
  Sex: Female

DRUGS (2)
  1. NAPROXEN [Suspect]
     Active Substance: NAPROXEN
     Indication: Musculoskeletal pain
     Route: 065
  2. CELECOXIB [Suspect]
     Active Substance: CELECOXIB
     Indication: Musculoskeletal pain
     Route: 065

REACTIONS (4)
  - Abdominal discomfort [Unknown]
  - Gastritis [Unknown]
  - Drug ineffective for unapproved indication [Unknown]
  - Off label use [Unknown]
